FAERS Safety Report 7297365-2 (Version None)
Quarter: 2011Q1

REPORT INFORMATION
  Report Type: 
  Country: None (occurrence: None)
  Receive Date: 20110216
  Receipt Date: 20110117
  Transmission Date: 20110831
  Serious: No
  Sender: FDA-Public Use
  Company Number: US-BAYER-2011-005816

PATIENT
  Sex: Female
  Weight: 59 kg

DRUGS (3)
  1. ALEVE (CAPLET) [Suspect]
     Indication: PAIN
     Route: 048
  2. OSTEO BI-FLEX [Concomitant]
  3. MIRALAX [Concomitant]
     Indication: CONSTIPATION

REACTIONS (1)
  - CONSTIPATION [None]
